FAERS Safety Report 6758897-6 (Version None)
Quarter: 2010Q2

REPORT INFORMATION
  Report Type: 
  Country: None (occurrence: None)
  Receive Date: 20100607
  Receipt Date: 20100524
  Transmission Date: 20101027
  Serious: Yes (Other)
  Sender: FDA-Public Use
  Company Number: PHHY2010US33489

PATIENT
  Sex: Male

DRUGS (11)
  1. GLEEVEC [Suspect]
     Indication: CHRONIC MYELOID LEUKAEMIA
     Dosage: 400 MG, QD
     Route: 048
     Dates: start: 20090826
  2. GLEEVEC [Suspect]
     Dosage: 300 MG DAILY
     Route: 048
  3. GLEEVEC [Suspect]
     Dosage: 200 MG DAILY
     Route: 048
     Dates: start: 20100305, end: 20100428
  4. PREDNISONE [Concomitant]
     Dosage: 15 MG DAILY
     Route: 048
  5. BACTRIM DS [Concomitant]
     Dosage: 1 EVERY MONDAY, WEDNESDAY AND FRIDAY
     Route: 048
  6. EFFEXOR XR [Concomitant]
     Dosage: 120 MG DAILY
     Route: 048
  7. OXYCODONE [Concomitant]
     Dosage: 60 MG, TID
     Route: 048
  8. ROXANOL [Concomitant]
     Indication: BREAKTHROUGH PAIN
  9. OXYGEN [Concomitant]
     Dosage: 3 L, PRN
  10. RITUXIMAB [Concomitant]
     Dosage: UNK
     Dates: start: 20090101
  11. ADDERALL 10 [Concomitant]
     Dosage: 10 MG IN MORNING AND 5 MG IN MIDDAY
     Route: 048

REACTIONS (14)
  - BLISTER [None]
  - CONDITION AGGRAVATED [None]
  - DEPRESSION [None]
  - DRUG INTOLERANCE [None]
  - GRAFT DELAMINATION [None]
  - GRAFT VERSUS HOST DISEASE [None]
  - LETHARGY [None]
  - LIMB DISCOMFORT [None]
  - MALAISE [None]
  - NASAL CONGESTION [None]
  - PLEURAL EFFUSION [None]
  - RHINORRHOEA [None]
  - SKIN HYPERTROPHY [None]
  - SKIN ULCER [None]
